FAERS Safety Report 7970109-4 (Version None)
Quarter: 2011Q4

REPORT INFORMATION
  Report Type: 
  Country: None (occurrence: None)
  Receive Date: 20111212
  Receipt Date: 20111201
  Transmission Date: 20120403
  Serious: Yes (Hospitalization)
  Sender: FDA-Public Use
  Company Number: FR-AMGEN-FRASP2011064659

PATIENT
  Age: 33 Year
  Sex: Female

DRUGS (2)
  1. ENBREL [Suspect]
     Indication: RHEUMATOID ARTHRITIS
     Dosage: 50 MG, 1X/WEEK
     Route: 058
     Dates: start: 20050101
  2. LEVONORGESTREL [Suspect]
     Indication: CONTRACEPTION
     Dosage: UNK

REACTIONS (3)
  - UNINTENDED PREGNANCY [None]
  - DRUG INEFFECTIVE [None]
  - ECTOPIC PREGNANCY [None]
